FAERS Safety Report 16766437 (Version 1)
Quarter: 2019Q3

REPORT INFORMATION
  Report Type: Spontaneous
  Country: CH (occurrence: CH)
  Receive Date: 20190903
  Receipt Date: 20190903
  Transmission Date: 20191005
  Serious: Yes (Other)
  Sender: FDA-Public Use
  Company Number: CH-PROVELL PHARMACEUTICALS-2073934

PATIENT
  Age: 61 Year
  Sex: Female

DRUGS (21)
  1. ELTROXIN [Concomitant]
     Active Substance: LEVOTHYROXINE
     Dates: start: 20190419
  2. EUTHYROX [Suspect]
     Active Substance: LEVOTHYROXINE SODIUM
     Indication: PRODUCT USED FOR UNKNOWN INDICATION
     Route: 048
     Dates: start: 20190419
  3. ZOLPIDEM [Suspect]
     Active Substance: ZOLPIDEM TARTRATE
     Route: 048
  4. MORPHINE HCL [Suspect]
     Active Substance: MORPHINE HYDROCHLORIDE
     Route: 048
  5. ANXIOLIT [Concomitant]
     Active Substance: OXAZEPAM
     Dates: start: 20190730
  6. MORPHINE HCL [Suspect]
     Active Substance: MORPHINE HYDROCHLORIDE
     Route: 048
     Dates: start: 201905
  7. DAFALGAN [Concomitant]
     Active Substance: ACETAMINOPHEN
  8. AMLODIPINE [Suspect]
     Active Substance: AMLODIPINE BESYLATE
     Route: 048
     Dates: start: 20190709
  9. CLEXANE [Suspect]
     Active Substance: ENOXAPARIN SODIUM
     Route: 058
     Dates: start: 20190521
  10. KIOVIG [Suspect]
     Active Substance: HUMAN IMMUNOGLOBULIN G
     Route: 042
     Dates: start: 20190605, end: 20190609
  11. PASPERTIN [Concomitant]
  12. LAXOBERON [Concomitant]
     Active Substance: SODIUM PICOSULFATE
  13. SODIUM PHOSPHATE [Concomitant]
     Active Substance: SODIUM PHOSPHATE
  14. MOVICOL [Concomitant]
     Active Substance: POLYETHYLENE GLYCOL 3350\POTASSIUM CHLORIDE\SODIUM BICARBONATE\SODIUM CHLORIDE
  15. MORPHINE HCL [Suspect]
     Active Substance: MORPHINE HYDROCHLORIDE
     Route: 048
     Dates: end: 20190516
  16. CALCIMAGON D3(LEKOVIT CA) [Concomitant]
  17. VENLAFAXINE [Suspect]
     Active Substance: VENLAFAXINE HYDROCHLORIDE
     Route: 048
     Dates: start: 20190614, end: 20190730
  18. VALIUM [Suspect]
     Active Substance: DIAZEPAM
     Route: 048
     Dates: start: 20190504, end: 20190730
  19. SILVER NITRATE. [Concomitant]
     Active Substance: SILVER NITRATE
  20. DAFALGAN [Concomitant]
     Active Substance: ACETAMINOPHEN
     Dates: end: 20190701
  21. FENTANYL. [Concomitant]
     Active Substance: FENTANYL

REACTIONS (1)
  - Cholestatic liver injury [Not Recovered/Not Resolved]

NARRATIVE: CASE EVENT DATE: 20190724
